FAERS Safety Report 18769480 (Version 1)
Quarter: 2021Q1

REPORT INFORMATION
  Report Type: Spontaneous
  Country: CN (occurrence: CN)
  Receive Date: 20210121
  Receipt Date: 20210121
  Transmission Date: 20210419
  Serious: Yes (Other)
  Sender: FDA-Public Use
  Company Number: CN-PFIZER INC-2021036408

PATIENT
  Age: 9 Year
  Sex: Male
  Weight: 43 kg

DRUGS (1)
  1. METHOTREXATE. [Suspect]
     Active Substance: METHOTREXATE
     Indication: OSTEOSARCOMA
     Dosage: 15 G, 1X/DAY
     Route: 041
     Dates: start: 20201220, end: 20201220

REACTIONS (3)
  - Pyrexia [Recovered/Resolved]
  - Off label use [Unknown]
  - Inflammation [Unknown]

NARRATIVE: CASE EVENT DATE: 20201220
